FAERS Safety Report 5352377-0 (Version None)
Quarter: 2007Q2

REPORT INFORMATION
  Report Type: 
  Country: None (occurrence: None)
  Receive Date: 20070607
  Receipt Date: 20070525
  Transmission Date: 20071010
  Serious: Yes (Life-Threatening, Hospitalization)
  Sender: FDA-Public Use
  Company Number: M7001-00001-SPO-DE

PATIENT
  Age: 85 Year
  Sex: Male
  Weight: 61 kg

DRUGS (8)
  1. TARGRETIN [Suspect]
     Indication: MYCOSIS FUNGOIDES
     Dosage: 300 MG/M2, 1 IN 1 D, ORAL
     Route: 048
     Dates: start: 20070410, end: 20070502
  2. FENOFIBRATE [Concomitant]
  3. PENTAERYTHIRITOL TETRANITRATE TAB [Concomitant]
  4. FUROSEMIDE [Concomitant]
  5. ASPIRIN [Concomitant]
  6. TOPAMAX [Concomitant]
  7. ALLOPURINOL [Concomitant]
  8. CETIRIZINE HCL [Concomitant]

REACTIONS (4)
  - BLOOD CREATININE INCREASED [None]
  - HYPERTRIGLYCERIDAEMIA [None]
  - HYPOTHYROIDISM [None]
  - MYOGLOBIN BLOOD INCREASED [None]
